FAERS Safety Report 22382358 (Version 1)
Quarter: 2023Q2

REPORT INFORMATION
  Report Type: Spontaneous
  Country: US (occurrence: US)
  Receive Date: 20230530
  Receipt Date: 20230530
  Transmission Date: 20230722
  Serious: Yes (Disabling)
  Sender: FDA-Public Use
  Company Number: US-SA-SAC20230529000108

PATIENT
  Age: 63 Year
  Sex: Female

DRUGS (2)
  1. NEXVIAZYME [Suspect]
     Active Substance: AVALGLUCOSIDASE ALFA-NGPT
     Indication: Glycogen storage disease type II
     Dosage: 20 MG/KG, QOW
     Route: 065
  2. LUMIZYME [Concomitant]
     Active Substance: ALGLUCOSIDASE ALFA
     Dosage: 30 MG/KG, QOW
     Route: 065

REACTIONS (5)
  - Loss of personal independence in daily activities [Unknown]
  - Lung disorder [Unknown]
  - Disease progression [Unknown]
  - Asthenia [Unknown]
  - Fatigue [Unknown]
